FAERS Safety Report 14826416 (Version 1)
Quarter: 2018Q2

REPORT INFORMATION
  Report Type: Spontaneous
  Country: DE (occurrence: DE)
  Receive Date: 20180430
  Receipt Date: 20180430
  Transmission Date: 20180711
  Serious: Yes (Disabling)
  Sender: FDA-Public Use
  Company Number: PHHY2018DE071432

PATIENT
  Age: 59 Year
  Sex: Female
  Weight: 40 kg

DRUGS (2)
  1. LEVOFLOXACIN HEXAL [Suspect]
     Active Substance: LEVOFLOXACIN
     Indication: PNEUMONIA
     Dosage: 500 MG, BID
     Route: 065
     Dates: start: 20180324, end: 20180326
  2. LEVOFLOXACIN HEXAL [Suspect]
     Active Substance: LEVOFLOXACIN
     Indication: PYREXIA
     Dosage: 500 MG, QD
     Route: 065
     Dates: start: 20180327, end: 20180330

REACTIONS (12)
  - Tremor [Not Recovered/Not Resolved]
  - Sleep disorder [Not Recovered/Not Resolved]
  - Gastrointestinal pain [Not Recovered/Not Resolved]
  - Physical disability [Not Recovered/Not Resolved]
  - Myalgia [Not Recovered/Not Resolved]
  - Gait disturbance [Not Recovered/Not Resolved]
  - Muscle injury [Not Recovered/Not Resolved]
  - Visual impairment [Not Recovered/Not Resolved]
  - Oral fungal infection [Not Recovered/Not Resolved]
  - Chromaturia [Not Recovered/Not Resolved]
  - Hypoaesthesia [Not Recovered/Not Resolved]
  - Goitre [Not Recovered/Not Resolved]

NARRATIVE: CASE EVENT DATE: 20180326
